FAERS Safety Report 23659307 (Version 1)
Quarter: 2024Q1

REPORT INFORMATION
  Report Type: Report from Study
  Country: CN (occurrence: CN)
  Receive Date: 20240321
  Receipt Date: 20240321
  Transmission Date: 20240410
  Serious: Yes (Other)
  Sender: FDA-Public Use
  Company Number: CN-FOSUNKITE-FOSUNKITE-20240484

PATIENT
  Age: 63 Year
  Sex: Male

DRUGS (3)
  1. AXICABTAGENE CILOLEUCEL [Suspect]
     Active Substance: AXICABTAGENE CILOLEUCEL
     Indication: Non-Hodgkin^s lymphoma
     Dosage: 1.5X10^8 CELLS (NUMBER OF CAR-T CELLS)
     Route: 065
     Dates: start: 20230621, end: 20230621
  2. FLUDARABINE [Concomitant]
     Active Substance: FLUDARABINE PHOSPHATE
     Indication: Lymphodepletion
     Dosage: 50 MG
     Route: 041
     Dates: start: 20230616, end: 20230618
  3. CYCLOPHOSPHAMIDE [Concomitant]
     Active Substance: CYCLOPHOSPHAMIDE
     Indication: Lymphodepletion
     Dosage: 905 MG
     Route: 041
     Dates: start: 20230616, end: 20230618

REACTIONS (12)
  - Systemic inflammatory response syndrome [Not Recovered/Not Resolved]
  - Cytokine release syndrome [Recovered/Resolved]
  - White blood cell count decreased [Not Recovered/Not Resolved]
  - Anaemia [Recovered/Resolved]
  - Cytokine increased [Recovered/Resolved]
  - Hypoalbuminaemia [Recovered/Resolved]
  - Serum ferritin increased [Recovered/Resolved]
  - C-reactive protein increased [Not Recovered/Not Resolved]
  - Hypocalcaemia [Recovered/Resolved]
  - Neutrophil count decreased [Recovered/Resolved]
  - Mass [Not Recovered/Not Resolved]
  - Rash [Not Recovered/Not Resolved]

NARRATIVE: CASE EVENT DATE: 20230622
